FAERS Safety Report 8918037 (Version 1)
Quarter: 2012Q4

REPORT INFORMATION
  Report Type: 
  Country: AU (occurrence: AU)
  Receive Date: 20121120
  Receipt Date: 20121120
  Transmission Date: 20130627
  Serious: Yes (Disabling, Other)
  Sender: FDA-Public Use
  Company Number: AU-GILEAD-2012-0064662

PATIENT
  Age: 64 Year
  Sex: Female

DRUGS (2)
  1. ADEFOVIR DIPIVOXIL [Suspect]
     Indication: CHRONIC HEPATITIS B
     Dosage: 20 mg, QD
     Route: 048
     Dates: start: 2008
  2. LAMIVUDINE [Concomitant]
     Indication: CHRONIC HEPATITIS B
     Dosage: 100 mg, QD
     Dates: start: 2001

REACTIONS (5)
  - Osteonecrosis [Recovering/Resolving]
  - Osteoporosis [Recovering/Resolving]
  - Tibia fracture [Recovering/Resolving]
  - Arthralgia [Recovering/Resolving]
  - Fanconi syndrome acquired [Recovering/Resolving]
